FAERS Safety Report 4816226-9 (Version None)
Quarter: 2005Q4

REPORT INFORMATION
  Report Type: 
  Country: None (occurrence: None)
  Receive Date: 20051026
  Receipt Date: 20051019
  Transmission Date: 20060501
  Serious: Yes (Life-Threatening, Other)
  Sender: FDA-Public Use
  Company Number: UKP05000335

PATIENT
  Age: 40 Year
  Sex: Male
  Weight: 50 kg

DRUGS (1)
  1. MESALAMINE [Suspect]
     Indication: COLITIS ULCERATIVE
     Dosage: 400 MG, 4/DAY, ORAL
     Route: 048
     Dates: start: 19890101, end: 19980101

REACTIONS (2)
  - DIALYSIS [None]
  - RENAL FAILURE [None]
